FAERS Safety Report 9348425 (Version 1)
Quarter: 2013Q2

REPORT INFORMATION
  Report Type: Spontaneous
  Country: US (occurrence: None)
  Receive Date: 20130613
  Receipt Date: 20130613
  Transmission Date: 20140414
  Serious: No
  Sender: FDA-Public Use
  Company Number: None

PATIENT
  Age: 32 Year
  Sex: Female

DRUGS (5)
  1. BUPROPION HCL [Suspect]
     Indication: ANTIDEPRESSANT THERAPY
     Dosage: 100 AND 300MG?100=2 PILLS A DAY; 300=1 PILL A DAY?100=TWICE DAILY; 300=ONCE DAILY
     Route: 048
     Dates: start: 20130417
  2. BUPROPION HCL [Suspect]
  3. CENTRUM [Concomitant]
  4. FISH OIL [Concomitant]
  5. CALCIUM [Concomitant]

REACTIONS (5)
  - Rash [None]
  - Headache [None]
  - Musculoskeletal stiffness [None]
  - Vision blurred [None]
  - Pyrexia [None]
